FAERS Safety Report 4577458-0 (Version None)
Quarter: 2005Q1

REPORT INFORMATION
  Report Type: 
  Country: None (occurrence: None)
  Receive Date: 20050208
  Receipt Date: 20050128
  Transmission Date: 20050727
  Serious: Yes (Hospitalization)
  Sender: FDA-Public Use
  Company Number: 2005022822

PATIENT
  Age: 71 Year
  Sex: Male

DRUGS (5)
  1. ALDACTONE [Suspect]
     Indication: ILL-DEFINED DISORDER
     Dosage: ORAL
     Route: 048
     Dates: start: 20040916
  2. TEMOCAPRIL HYDROCHLORIDE (TEMOCAPRIL HYDROCHLORIDE) [Concomitant]
     Indication: ILL-DEFINED DISORDER
     Dosage: ORAL
     Route: 048
  3. METFORMIN HCL [Suspect]
     Indication: ILL-DEFINED DISORDER
     Dosage: ORAL
     Route: 048
     Dates: start: 20040715
  4. ETHYL ICOSAPENTATE (ETHYL ICOSAPENTATE) [Concomitant]
     Indication: ILL-DEFINED DISORDER
     Dosage: ORAL
     Route: 048
     Dates: start: 20041014
  5. CANDESARTAN CILEXETIL (CANDESARTAN CILEXETIL) [Concomitant]

REACTIONS (1)
  - ISCHAEMIC STROKE [None]
